FAERS Safety Report 13721857 (Version 1)
Quarter: 2017Q3

REPORT INFORMATION
  Report Type: Report from Study
  Country: US (occurrence: US)
  Receive Date: 20170706
  Receipt Date: 20170706
  Transmission Date: 20171127
  Serious: Yes (Death)
  Sender: FDA-Public Use
  Company Number: US-PFIZER INC-2017284033

PATIENT

DRUGS (2)
  1. METHOTREXATE SODIUM. [Suspect]
     Active Substance: METHOTREXATE SODIUM
     Indication: RHEUMATOID ARTHRITIS
     Dosage: 20 MG, WEEKLY (LOW-DOSE)
  2. DICLOFENAC [Interacting]
     Active Substance: DICLOFENAC
     Dosage: UNK

REACTIONS (4)
  - Renal failure [Fatal]
  - Pancytopenia [Fatal]
  - Toxicity to various agents [Fatal]
  - Drug interaction [Fatal]
